FAERS Safety Report 23453280 (Version 2)
Quarter: 2024Q1

REPORT INFORMATION
  Report Type: Spontaneous
  Country: US (occurrence: US)
  Receive Date: 20240129
  Receipt Date: 20240226
  Transmission Date: 20240409
  Serious: Yes (Death, Hospitalization, Other)
  Sender: FDA-Public Use
  Company Number: US-002147023-NVSC2024US019485

PATIENT
  Age: 82 Year
  Sex: Male
  Weight: 77.1 kg

DRUGS (3)
  1. SANDOSTATIN LAR DEPOT [Suspect]
     Active Substance: OCTREOTIDE ACETATE
     Indication: Diffuse large B-cell lymphoma
     Dosage: 30 MG (28 DAYS)
     Route: 030
     Dates: start: 20230220, end: 20240119
  2. SANDOSTATIN LAR DEPOT [Suspect]
     Active Substance: OCTREOTIDE ACETATE
  3. SANDOSTATIN LAR DEPOT [Suspect]
     Active Substance: OCTREOTIDE ACETATE

REACTIONS (7)
  - Death [Fatal]
  - Atrial fibrillation [Unknown]
  - Haematemesis [Unknown]
  - Rectal haemorrhage [Unknown]
  - Haemoptysis [Unknown]
  - Epistaxis [Unknown]
  - Dry mouth [Unknown]

NARRATIVE: CASE EVENT DATE: 20240119
